FAERS Safety Report 5967617-4 (Version None)
Quarter: 2008Q4

REPORT INFORMATION
  Report Type: 
  Country: None (occurrence: None)
  Receive Date: 20081126
  Receipt Date: 20081114
  Transmission Date: 20090506
  Serious: Yes (Other)
  Sender: FDA-Public Use
  Company Number: PHHY2008ES27529

PATIENT
  Age: 50 Year
  Sex: Female

DRUGS (9)
  1. RASILEZ [Suspect]
     Indication: HYPERTENSION
     Dosage: 300 MG, QD
     Route: 048
     Dates: start: 20081024, end: 20081025
  2. ISCOVER [Concomitant]
  3. CAPOTEN [Concomitant]
     Dosage: ON DEMAND
  4. PARACETAMOL [Concomitant]
     Dosage: ON DEMAND
  5. NOLOTIL                                 /SPA/ [Concomitant]
  6. OLMETEC [Concomitant]
  7. RIVOTRIL [Concomitant]
  8. CARDURA [Concomitant]
  9. ROYEN [Concomitant]

REACTIONS (2)
  - ANGINA PECTORIS [None]
  - TACHYCARDIA [None]
